FAERS Safety Report 4404191-8 (Version None)
Quarter: 2004Q3

REPORT INFORMATION
  Report Type: 
  Country: None (occurrence: None)
  Receive Date: 20040721
  Receipt Date: 20040721
  Transmission Date: 20050211
  Serious: No
  Sender: FDA-Public Use
  Company Number: None

PATIENT
  Age: 81 Year
  Sex: Male
  Weight: 53.5 kg

DRUGS (16)
  1. CEFEPIME [Suspect]
     Indication: BACTERAEMIA
     Dosage: 1 GM IV
     Route: 042
     Dates: start: 20040203, end: 20040219
  2. FLUCONAZOLE [Concomitant]
  3. FLEET PREP KIT/PHOSPHO SODA #1 [Concomitant]
  4. ACETAMINOPHEN [Concomitant]
  5. METRONIDAZOLE [Concomitant]
  6. POTASSIUM CHLORIDE [Concomitant]
  7. HEPARIN [Concomitant]
  8. OXYBUTYIN CHLORIDE (IMMEDIATE RELEASE) [Concomitant]
  9. OMEPRAZOLE [Concomitant]
  10. FERROUS SULFATE TAB [Concomitant]
  11. PRAZOSIN HCL [Concomitant]
  12. FELODIPINE (SUSTAINED RELEASE) [Concomitant]
  13. GATIFLOXACIN [Concomitant]
  14. VANCOMYCIN [Concomitant]
  15. GENTAMICIN [Concomitant]
  16. CEFTRIAXONE [Concomitant]

REACTIONS (1)
  - CLOSTRIDIAL INFECTION [None]
